FAERS Safety Report 8288984-5 (Version None)
Quarter: 2012Q2

REPORT INFORMATION
  Report Type: 
  Country: None (occurrence: None)
  Receive Date: 20120412
  Receipt Date: 20120327
  Transmission Date: 20120825
  Serious: Yes (Hospitalization)
  Sender: FDA-Public Use
  Company Number: 2012CP000037

PATIENT
  Age: 53 Year
  Sex: Female

DRUGS (7)
  1. PROPOFOL [Suspect]
     Indication: SHOULDER ARTHROPLASTY
  2. KETOPROFEN [Suspect]
     Indication: SHOULDER ARTHROPLASTY
  3. SUFENTANIL CITRATE [Suspect]
     Indication: SHOULDER ARTHROPLASTY
  4. SEVOFLURANE [Suspect]
     Indication: SHOULDER ARTHROPLASTY
     Dates: start: 20110105
  5. ACETAMINOPHEN [Suspect]
     Indication: SHOULDER ARTHROPLASTY
     Dosage: IV
     Route: 042
  6. ACUPAN [Suspect]
     Indication: SHOULDER ARTHROPLASTY
     Dosage: DAY
     Dates: start: 20110105, end: 20110106
  7. KETAMINE HCL [Suspect]
     Indication: SHOULDER ARTHROPLASTY

REACTIONS (2)
  - CYTOLYTIC HEPATITIS [None]
  - CHOLESTASIS [None]
